FAERS Safety Report 10085159 (Version 3)
Quarter: 2014Q2

REPORT INFORMATION
  Report Type: Report from Study
  Country: BE (occurrence: BE)
  Receive Date: 20140417
  Receipt Date: 20140623
  Transmission Date: 20141212
  Serious: Yes (Hospitalization, Other)
  Sender: FDA-Public Use
  Company Number: BE-ABBVIE-12P-013-0926007-00

PATIENT
  Age: 52 Year
  Sex: Male
  Weight: 79 kg

DRUGS (14)
  1. HUMIRA 40 MG/ 0.8 ML PRE-FILLED SYRINGE [Suspect]
     Indication: PSORIASIS
     Dosage: LOADING DOSE
     Route: 058
     Dates: start: 20110712, end: 20110712
  2. HUMIRA 40 MG/ 0.8 ML PRE-FILLED SYRINGE [Suspect]
     Route: 058
     Dates: start: 20110719, end: 20120327
  3. HUMIRA 40 MG/ 0.8 ML PRE-FILLED SYRINGE [Suspect]
     Route: 058
     Dates: start: 20120522
  4. AMLOR [Concomitant]
     Indication: PRODUCT USED FOR UNKNOWN INDICATION
     Dates: start: 201010, end: 201109
  5. SEDACID [Concomitant]
     Indication: PRODUCT USED FOR UNKNOWN INDICATION
     Dates: start: 20120314, end: 20120327
  6. ALDACTONE [Concomitant]
     Indication: PRODUCT USED FOR UNKNOWN INDICATION
     Dates: start: 20120424, end: 20120824
  7. ALDACTONE [Concomitant]
     Dates: start: 20120825
  8. BEFACT FORTE [Concomitant]
     Indication: PRODUCT USED FOR UNKNOWN INDICATION
     Dates: start: 20120424
  9. ESOMEPRAZOLE [Concomitant]
     Indication: PRODUCT USED FOR UNKNOWN INDICATION
     Dates: start: 20130824
  10. ESOMEPRAZOLE [Concomitant]
     Dates: start: 20120424
  11. INDERAL [Concomitant]
     Indication: PRODUCT USED FOR UNKNOWN INDICATION
     Dates: end: 201302
  12. LASIX [Concomitant]
     Indication: PRODUCT USED FOR UNKNOWN INDICATION
     Dates: start: 20130824
  13. LASIX [Concomitant]
     Dates: start: 20120424, end: 20120704
  14. LASIX [Concomitant]
     Dates: start: 20120705

REACTIONS (54)
  - Splenomegaly [Unknown]
  - Microcytic anaemia [Unknown]
  - Hypoproteinaemia [Unknown]
  - Malnutrition [Unknown]
  - Hepatic failure [Unknown]
  - Amyotrophy [Unknown]
  - Hepatic cirrhosis [Recovered/Resolved]
  - Ascites [Unknown]
  - Hepatic fibrosis [Unknown]
  - Aortic valve incompetence [Unknown]
  - Mitral valve incompetence [Unknown]
  - General physical health deterioration [Unknown]
  - Decreased appetite [Unknown]
  - Weight increased [Recovered/Resolved]
  - Ascites [Recovered/Resolved]
  - Dyspnoea [Unknown]
  - Vomiting [Unknown]
  - Ocular icterus [Recovering/Resolving]
  - Rales [Unknown]
  - Haematemesis [Unknown]
  - Alcoholism [Unknown]
  - Varices oesophageal [Unknown]
  - Hypokalaemia [Recovered/Resolved]
  - Dyspnoea exertional [Unknown]
  - Faeces discoloured [Unknown]
  - Hypocalcaemia [Unknown]
  - Hypoalbuminaemia [Unknown]
  - Anaemia macrocytic [Unknown]
  - Abdominal distension [Unknown]
  - Oedema peripheral [Unknown]
  - Nausea [Recovering/Resolving]
  - Chest pain [Unknown]
  - Sinus tachycardia [Unknown]
  - Muscle spasms [Unknown]
  - Hepatic cirrhosis [Not Recovered/Not Resolved]
  - Dyspnoea [Recovered/Resolved]
  - Abdominal distension [Recovered/Resolved]
  - Hepatic cirrhosis [Recovered/Resolved]
  - Abdominal pain [Unknown]
  - Nausea [Unknown]
  - Oedema [Recovered/Resolved]
  - Oedema peripheral [Recovered/Resolved]
  - Vomiting [Unknown]
  - Parotid gland enlargement [Unknown]
  - Palmar erythema [Unknown]
  - Psoriasis [Unknown]
  - Haemangioma [Unknown]
  - Hypoventilation [Unknown]
  - Hepatomegaly [Unknown]
  - Hypoventilation [Unknown]
  - Inflammation [Recovered/Resolved]
  - General physical health deterioration [Unknown]
  - Hepatic function abnormal [Unknown]
  - Pancytopenia [Unknown]
